FAERS Safety Report 5455967-X (Version None)
Quarter: 2007Q3

REPORT INFORMATION
  Report Type: 
  Country: None (occurrence: None)
  Receive Date: 20070914
  Receipt Date: 20070905
  Transmission Date: 20080115
  Serious: Yes (Death, Hospitalization, Other)
  Sender: FDA-Public Use
  Company Number: 39526

PATIENT
  Age: 77 Year
  Sex: Female

DRUGS (32)
  1. LEUCOVORIN CALCIUM [Suspect]
     Indication: COLORECTAL CANCER METASTATIC
     Dosage: 400MG/M2; IV
     Route: 042
     Dates: start: 20070713, end: 20070701
  2. OXALIPLATIN [Suspect]
     Indication: COLORECTAL CANCER METASTATIC
     Dosage: 85 MILLIGRAM/SQ. METER 2 WEEK; IV
     Route: 042
     Dates: start: 20070613, end: 20070711
  3. BEVACIZUMAB [Suspect]
     Indication: COLORECTAL CANCER METASTATIC
     Dosage: 5 MILLIGRAM/KILOGRAM 2 WEEK; IV
     Route: 042
     Dates: start: 20070613, end: 20070711
  4. FLUOROURACIL [Suspect]
     Indication: COLORECTAL CANCER METASTATIC
     Dosage: 400 MILLIGRAM/SQ. METER 2 WEEK; IV
     Route: 042
     Dates: start: 20070613, end: 20070711
  5. LEUCOVORIN CALCIUM [Suspect]
     Indication: COLORECTAL CANCER METASTATIC
     Dosage: 400 MILLIGRAM/SQ. METER 2 WEEK; IV
     Route: 042
     Dates: start: 20070613, end: 20070711
  6. REFER TO CIOMS FORM 13856091 (26JUL2007) FOR DETAILS [Concomitant]
  7. REFER TO ATTACHED CIOMS FORM 13856091 (04SEP2007) FOR DETAILS [Concomitant]
  8. ACTONEL [Concomitant]
  9. ACYCLOVIR [Concomitant]
  10. CENTRUM SILVER (VITAMINS + MINERALS) [Concomitant]
  11. ASPIRIN [Concomitant]
  12. DIFLUCAN [Concomitant]
  13. GLUCOSAMINE+CHONDROITIN+MSM (GLUCOSAMINE+CHONDROITIN+METHYLSULFONYLMET [Concomitant]
  14. HYDROCODONE BITARTRATE [Concomitant]
  15. LEVAQUIN [Concomitant]
  16. LOMOTIL (DIPHENOXYLATE HCL) 07JUN2007-UNK [Concomitant]
  17. ATIVAN [Concomitant]
  18. LOTREL (AMLODIPINE BESYLATE+BENAZEPRIL HCL) [Concomitant]
  19. MAGIC MOUTHWASH (TETRACYCLINE+DEXTROMETHORPHAN+HCTZ+NYSTATIN) 07JUN200 [Concomitant]
  20. MAGNESIUM OXIDE (MAGNESIUM OXIDE) [Concomitant]
  21. METAMUCIL (ISPAGHULA) [Concomitant]
  22. REGLAN [Concomitant]
  23. POTASSIUM CHLORIDE [Concomitant]
  24. PREVACID (LANSOPRAZOLE) 11JUN2007-UNK [Concomitant]
  25. PHENERGAN (PROMETHAZINE HCL) 11JUN2007-UNK [Concomitant]
  26. XALATAN [Concomitant]
  27. ONDANSETRON HCL (ONDANSETRON HCL) [Concomitant]
  28. BENADRYL (DIPHENHYDRAMINE HCL ) 00MAY2007-UNK [Concomitant]
  29. SALINE (SODIUM CHLORIDE) [Concomitant]
  30. EMEND (APREPITANT) 07JUN2007-UNK [Concomitant]
  31. DECADRON (DEXAMETHASONE) 30MAY2007-UNK [Concomitant]
  32. AVASTIN (BEVACIZUMAB) 13JUN2007-UNK [Concomitant]

REACTIONS (7)
  - ABDOMINAL PAIN [None]
  - ASTHENIA [None]
  - FEBRILE NEUTROPENIA [None]
  - PULMONARY EMBOLISM [None]
  - RESPIRATORY FAILURE [None]
  - SEPSIS [None]
  - STOMATITIS [None]
